FAERS Safety Report 8459537-0 (Version None)
Quarter: 2012Q2

REPORT INFORMATION
  Report Type: 
  Country: None (occurrence: None)
  Receive Date: 20120622
  Receipt Date: 20120615
  Transmission Date: 20120825
  Serious: Yes (Other)
  Sender: FDA-Public Use
  Company Number: JP-PFIZER INC-2012129352

PATIENT
  Age: 70 Year
  Sex: Male

DRUGS (1)
  1. XALATAN [Suspect]
     Indication: GLAUCOMA
     Dosage: 1 DROP/DAY
     Route: 047
     Dates: start: 20120330, end: 20120430

REACTIONS (2)
  - ERYTHEMA [None]
  - EYE PAIN [None]
